FAERS Safety Report 14489762 (Version 1)
Quarter: 2018Q1

REPORT INFORMATION
  Report Type: Spontaneous
  Country: US (occurrence: US)
  Receive Date: 20180205
  Receipt Date: 20180205
  Transmission Date: 20180509
  Serious: Yes (Hospitalization, Other)
  Sender: FDA-Public Use
  Company Number: US-MYLANLABS-2018M1007147

PATIENT
  Age: 36 Year
  Sex: Male

DRUGS (2)
  1. HEROIN [Suspect]
     Active Substance: DIAMORPHINE
     Indication: PRODUCT USED FOR UNKNOWN INDICATION
     Dosage: 0.5G OF HEROIN MIXED WITH FENTANYL EVERY TIME; ON THE DAY OF PRESENTATION- 0.5G OF HEROIN MIXED W...
     Route: 065
  2. FENTANYL. [Suspect]
     Active Substance: FENTANYL
     Indication: PRODUCT USED FOR UNKNOWN INDICATION
     Dosage: 0.5G OF HEROIN MIXED WITH FENTANYL EVERY TIME; ON THE DAY OF PRESENTATION- 0.5G OF HEROIN MIXED W...
     Route: 042

REACTIONS (8)
  - Depressed level of consciousness [Recovered/Resolved]
  - Accidental overdose [Recovered/Resolved]
  - Bradypnoea [Recovered/Resolved]
  - Drug abuse [Recovered/Resolved]
  - Hypoxia [Recovered/Resolved]
  - Pulmonary oedema [Recovered/Resolved]
  - Cyanosis [Unknown]
  - Miosis [Recovered/Resolved]
